FAERS Safety Report 6508015-4 (Version None)
Quarter: 2009Q4

REPORT INFORMATION
  Report Type: 
  Country: None (occurrence: None)
  Receive Date: 20091221
  Receipt Date: 20091211
  Transmission Date: 20100525
  Serious: Yes (Death, Hospitalization)
  Sender: FDA-Public Use
  Company Number: US-MILLENNIUM PHARMACEUTICALS, INC.-2009-05137

PATIENT
  Age: 69 Year
  Sex: Female
  Weight: 69 kg

DRUGS (3)
  1. VELCADE [Suspect]
     Indication: ACUTE MYELOID LEUKAEMIA
     Dosage: 1.3 MG/M2, CYCLIC
     Route: 040
     Dates: start: 20091120
  2. DAUNORUBICIN [Suspect]
     Indication: ACUTE MYELOID LEUKAEMIA
     Dosage: 60 MG/M2, CYCLIC
     Route: 042
     Dates: start: 20091120, end: 20091122
  3. CYTARABINE [Suspect]
     Indication: ACUTE MYELOID LEUKAEMIA
     Dosage: 100 MG/M2, CYCLIC
     Route: 042
     Dates: start: 20091120

REACTIONS (39)
  - ABDOMINAL PAIN [None]
  - ACUTE RESPIRATORY DISTRESS SYNDROME [None]
  - ALANINE AMINOTRANSFERASE INCREASED [None]
  - ASPARTATE AMINOTRANSFERASE INCREASED [None]
  - BLOOD ALKALINE PHOSPHATASE INCREASED [None]
  - BLOOD GLUCOSE INCREASED [None]
  - BLOOD POTASSIUM INCREASED [None]
  - CHEST DISCOMFORT [None]
  - DECREASED APPETITE [None]
  - DEVICE RELATED INFECTION [None]
  - DIARRHOEA [None]
  - DIZZINESS [None]
  - DRY MOUTH [None]
  - FACIAL PALSY [None]
  - FATIGUE [None]
  - FEBRILE NEUTROPENIA [None]
  - GASTROINTESTINAL PAIN [None]
  - HAEMANGIOMA [None]
  - HAEMOGLOBIN DECREASED [None]
  - HEADACHE [None]
  - HYPOTENSION [None]
  - HYPOXIA [None]
  - INFECTION [None]
  - LEFT VENTRICULAR DYSFUNCTION [None]
  - MUSCULOSKELETAL CHEST PAIN [None]
  - MYOCARDIAL INFARCTION [None]
  - NAUSEA [None]
  - NEUTROPHIL COUNT DECREASED [None]
  - OROPHARYNGEAL PAIN [None]
  - PERIPHERAL MOTOR NEUROPATHY [None]
  - PERIPHERAL SENSORY NEUROPATHY [None]
  - PLATELET COUNT DECREASED [None]
  - RESPIRATORY FAILURE [None]
  - SEPSIS [None]
  - SOMNOLENCE [None]
  - UNRESPONSIVE TO STIMULI [None]
  - URINARY TRACT INFECTION [None]
  - VOMITING [None]
  - WHITE BLOOD CELL COUNT DECREASED [None]
